FAERS Safety Report 12264357 (Version 1)
Quarter: 2016Q2

REPORT INFORMATION
  Report Type: Not Available
  Country: US (occurrence: US)
  Receive Date: 20160413
  Receipt Date: 20160413
  Transmission Date: 20160815
  Serious: No
  Sender: FDA-Public Use
  Company Number: US-HISAMITSU-2015-US-000299

PATIENT
  Age: 69 Year
  Sex: Female

DRUGS (3)
  1. SALONPAS ARTHRITIS PAIN [Suspect]
     Active Substance: MENTHOL\METHYL SALICYLATE
     Dosage: 1 PATCH
     Route: 061
     Dates: start: 20150801, end: 20151018
  2. TRAMADOL. [Concomitant]
     Active Substance: TRAMADOL
  3. ACETAMINOPHEN. [Concomitant]
     Active Substance: ACETAMINOPHEN

REACTIONS (2)
  - Product adhesion issue [None]
  - Drug ineffective [Unknown]

NARRATIVE: CASE EVENT DATE: 20150801
